FAERS Safety Report 21884526 (Version 1)
Quarter: 2023Q1

REPORT INFORMATION
  Report Type: Spontaneous
  Country: JP (occurrence: JP)
  Receive Date: 20230119
  Receipt Date: 20230119
  Transmission Date: 20230417
  Serious: Yes (Hospitalization)
  Sender: FDA-Public Use
  Company Number: JP-MTPC-MTPC2023-0001109

PATIENT
  Age: 55 Year
  Sex: Female

DRUGS (4)
  1. CANAGLIFLOZIN [Suspect]
     Active Substance: CANAGLIFLOZIN
     Indication: Product used for unknown indication
     Route: 048
  2. DULAGLUTIDE [Concomitant]
     Active Substance: DULAGLUTIDE
     Dosage: 0.75 MILLIGRAM
     Route: 048
  3. GLIMEPIRIDE [Concomitant]
     Active Substance: GLIMEPIRIDE
     Dosage: 0.5 MILLIGRAM
     Route: 048
  4. METFORMIN HYDROCHLORIDE [Concomitant]
     Active Substance: METFORMIN HYDROCHLORIDE
     Dosage: 500 MILLIGRAM
     Route: 048

REACTIONS (2)
  - Epiglottitis [Recovering/Resolving]
  - Euglycaemic diabetic ketoacidosis [Recovering/Resolving]
